FAERS Safety Report 19965402 (Version 4)
Quarter: 2022Q3

REPORT INFORMATION
  Report Type: Report from Study
  Country: US (occurrence: US)
  Receive Date: 20211018
  Receipt Date: 20220801
  Transmission Date: 20221026
  Serious: Yes (Death, Life-Threatening, Hospitalization)
  Sender: FDA-Public Use
  Company Number: US-ABBVIE-21P-163-4121188-00

PATIENT
  Age: 80 Year
  Sex: Male
  Weight: 79.8 kg

DRUGS (6)
  1. IBRUTINIB [Suspect]
     Active Substance: IBRUTINIB
     Indication: Waldenstrom^s macroglobulinaemia
     Route: 048
     Dates: start: 20210910, end: 20211003
  2. MAVORIXAFOR/X4P-001 [Concomitant]
     Indication: Waldenstrom^s macroglobulinaemia
     Route: 048
     Dates: start: 20210910, end: 20211003
  3. DULOXETINE [Concomitant]
     Active Substance: DULOXETINE
     Indication: Product used for unknown indication
     Dates: start: 201508
  4. ATIVAN [Concomitant]
     Active Substance: LORAZEPAM
     Indication: Product used for unknown indication
     Dates: start: 201905
  5. PROTONIX [Concomitant]
     Active Substance: PANTOPRAZOLE SODIUM
     Indication: Product used for unknown indication
     Dates: start: 201510
  6. IMODIUM [Concomitant]
     Active Substance: LOPERAMIDE HYDROCHLORIDE
     Indication: Product used for unknown indication
     Dates: start: 201510

REACTIONS (2)
  - Sepsis [Fatal]
  - Pneumonia [Unknown]

NARRATIVE: CASE EVENT DATE: 20211004
